FAERS Safety Report 9580529 (Version 1)
Quarter: 2013Q3

REPORT INFORMATION
  Report Type: Spontaneous
  Country: US (occurrence: None)
  Receive Date: 20130916
  Receipt Date: 20130916
  Transmission Date: 20140515
  Serious: Yes (Other)
  Sender: FDA-Public Use
  Company Number: JPI-P-031833

PATIENT
  Age: 36 Year
  Sex: Male
  Weight: 81.65 kg

DRUGS (2)
  1. XYREM (500 MILLIGRAM/MILLILITERS, SOLUTION) (SODIUM OXYBATE) [Suspect]
     Indication: CATAPLEXY
     Dosage: 4.5 GM (2.25 GM, 2 IN 1 D), ORAL
     Route: 048
     Dates: start: 20130405, end: 2013
  2. MODAFINIL [Concomitant]

REACTIONS (3)
  - Sleep apnoea syndrome [None]
  - Condition aggravated [None]
  - Snoring [None]
